FAERS Safety Report 18381692 (Version 1)
Quarter: 2020Q4

REPORT INFORMATION
  Report Type: Spontaneous
  Country: DE (occurrence: DE)
  Receive Date: 20201014
  Receipt Date: 20201014
  Transmission Date: 20210114
  Serious: Yes (Hospitalization)
  Sender: FDA-Public Use
  Company Number: DE-TEVA-2020-DE-1837589

PATIENT
  Age: 52 Year
  Sex: Female

DRUGS (3)
  1. OLANZAPIN [Suspect]
     Active Substance: OLANZAPINE
     Dosage: FROM AUGUST 17TH, 2020 REDUCTION TO 10MG / D. DISCONTINUED ON 20-AUG-2020, (UNIT DOSE: 20 MG)
     Dates: start: 20200804, end: 20200816
  2. OLANZAPIN [Suspect]
     Active Substance: OLANZAPINE
     Dosage: 15 MG
     Dates: start: 20200730, end: 20200803
  3. DIAZEPAM. [Suspect]
     Active Substance: DIAZEPAM
     Dosage: 25 MG
     Dates: start: 20200727

REACTIONS (6)
  - Abdominal pain [Recovered/Resolved]
  - Dyschezia [Unknown]
  - Constipation [Recovered/Resolved]
  - Gastrointestinal sounds abnormal [Recovered/Resolved]
  - Abdominal tenderness [Recovered/Resolved]
  - Abdominal distension [Recovered/Resolved]

NARRATIVE: CASE EVENT DATE: 20200806
